FAERS Safety Report 25683479 (Version 1)
Quarter: 2025Q3

REPORT INFORMATION
  Report Type: Spontaneous
  Country: US (occurrence: US)
  Receive Date: 20250814
  Receipt Date: 20250814
  Transmission Date: 20251021
  Serious: No
  Sender: SANOFI AVENTIS
  Company Number: US-SA-2025SA238593

PATIENT
  Age: 18 Year
  Sex: Male

DRUGS (1)
  1. RIFAMPIN [Suspect]
     Active Substance: RIFAMPIN

REACTIONS (3)
  - Bile acids increased [Unknown]
  - Pruritus [Unknown]
  - Therapeutic response decreased [Unknown]
